FAERS Safety Report 7729136-4 (Version None)
Quarter: 2011Q3

REPORT INFORMATION
  Report Type: 
  Country: None (occurrence: None)
  Receive Date: 20110906
  Receipt Date: 20110829
  Transmission Date: 20111222
  Serious: Yes (Life-Threatening, Hospitalization)
  Sender: FDA-Public Use
  Company Number: DE-JNJFOC-20110807866

PATIENT
  Sex: Male

DRUGS (3)
  1. ZYTIGA [Suspect]
     Indication: PROSTATE CANCER
     Route: 048
     Dates: start: 20110303
  2. PREDNISOLONE [Suspect]
     Indication: PROSTATE CANCER METASTATIC
     Route: 048
     Dates: start: 20110303
  3. ZYTIGA [Suspect]
     Route: 048

REACTIONS (3)
  - LIVER FUNCTION TEST ABNORMAL [None]
  - CHOLESTASIS [None]
  - INTESTINAL OBSTRUCTION [None]
